FAERS Safety Report 16702990 (Version 1)
Quarter: 2019Q3

REPORT INFORMATION
  Report Type: Spontaneous
  Country: US (occurrence: US)
  Receive Date: 20190814
  Receipt Date: 20190814
  Transmission Date: 20191004
  Serious: Yes (Hospitalization, Other)
  Sender: FDA-Public Use
  Company Number: US-HIKMA PHARMACEUTICALS USA INC.-US-H14001-19-04570

PATIENT
  Age: 52 Year
  Sex: Male

DRUGS (1)
  1. CEPHALEXIN. [Suspect]
     Active Substance: CEPHALEXIN
     Indication: CELLULITIS
     Route: 065

REACTIONS (5)
  - Jarisch-Herxheimer reaction [Recovering/Resolving]
  - Condition aggravated [Recovering/Resolving]
  - Mania [Recovering/Resolving]
  - Psychotic disorder [Recovering/Resolving]
  - Neurosyphilis [Recovering/Resolving]
